FAERS Safety Report 10453929 (Version 2)
Quarter: 2014Q3

REPORT INFORMATION
  Report Type: Report from Study
  Country: IT (occurrence: IT)
  Receive Date: 20140915
  Receipt Date: 20140915
  Transmission Date: 20150326
  Serious: Yes (Death, Hospitalization, Other)
  Sender: FDA-Public Use
  Company Number: IT-INCYTE CORPORATION-2014IN000325

PATIENT
  Age: 78 Year
  Sex: Female
  Weight: 59 kg

DRUGS (9)
  1. ASPIRIN. [Concomitant]
     Active Substance: ASPIRIN
     Indication: THROMBOSIS PROPHYLAXIS
     Dosage: 100 MG, QD
     Route: 048
     Dates: start: 20110607, end: 20140202
  2. AMLODIPINE [Concomitant]
     Active Substance: AMLODIPINE BESYLATE
     Indication: HYPERTENSION
     Dosage: 5 MG, QD
     Route: 048
     Dates: start: 20120516, end: 20140202
  3. ALLOPURINOL. [Concomitant]
     Active Substance: ALLOPURINOL
     Indication: PROPHYLAXIS
     Dosage: 300 MG, QD
     Route: 048
     Dates: start: 20110613, end: 20140202
  4. INCB018424 [Suspect]
     Active Substance: RUXOLITINIB
     Dosage: 15 MG, UNK (10 + 5 MG)
     Route: 048
     Dates: start: 20140213, end: 20140218
  5. INCB018424 [Suspect]
     Active Substance: RUXOLITINIB
     Indication: MYELOFIBROSIS
     Dosage: 15 MG, UNK (10 + 5 MG)
     Route: 048
     Dates: start: 20100114, end: 20140203
  6. METFORAL [Concomitant]
     Active Substance: METFORMIN HYDROCHLORIDE
     Indication: DIABETES MELLITUS
     Dosage: 500 MG, BID
     Route: 048
     Dates: start: 20110914, end: 20140202
  7. GLIMEPIRIDE. [Concomitant]
     Active Substance: GLIMEPIRIDE
     Indication: DIABETES MELLITUS
     Dosage: 2 MG, QD
     Route: 048
     Dates: start: 20111120, end: 20140202
  8. OLMEGAN [Concomitant]
     Indication: HYPERTENSION
     Dosage: 1 DF, QD (1 TAB QD)
     Route: 048
     Dates: start: 20110607, end: 20140202
  9. NEBIVOLOL [Concomitant]
     Active Substance: NEBIVOLOL
     Indication: HYPERTENSION
     Dosage: 5 MG, QD
     Route: 048
     Dates: start: 20120516, end: 20140202

REACTIONS (4)
  - Splenomegaly [Recovered/Resolved]
  - Pneumocystis jirovecii pneumonia [Not Recovered/Not Resolved]
  - Myelofibrosis [Fatal]
  - Bronchopneumonia [Recovered/Resolved]

NARRATIVE: CASE EVENT DATE: 20131024
